FAERS Safety Report 21174554 (Version 1)
Quarter: 2022Q3

REPORT INFORMATION
  Report Type: Spontaneous
  Country: US (occurrence: None)
  Receive Date: 20220805
  Receipt Date: 20220805
  Transmission Date: 20221027
  Serious: No
  Sender: FDA-Public Use
  Company Number: US-ROCHE-2926821

PATIENT
  Sex: Female
  Weight: 74.002 kg

DRUGS (3)
  1. BONIVA [Suspect]
     Active Substance: IBANDRONATE SODIUM
     Indication: Osteoporosis
     Dosage: TOOK WITH WATER
     Route: 048
     Dates: start: 20210228, end: 20210228
  2. BONIVA [Suspect]
     Active Substance: IBANDRONATE SODIUM
     Dosage: TOOK WITH WATER
     Route: 048
     Dates: start: 202105, end: 20210725
  3. FLONASE [Concomitant]
     Active Substance: FLUTICASONE PROPIONATE
     Indication: Seasonal allergy

REACTIONS (12)
  - Stomatitis [Not Recovered/Not Resolved]
  - Dysphagia [Not Recovered/Not Resolved]
  - Aptyalism [Not Recovered/Not Resolved]
  - Rash [Not Recovered/Not Resolved]
  - Decreased appetite [Not Recovered/Not Resolved]
  - Dyspepsia [Not Recovered/Not Resolved]
  - Gastrooesophageal reflux disease [Not Recovered/Not Resolved]
  - Oesophageal pain [Not Recovered/Not Resolved]
  - Swelling [Unknown]
  - Gingival pain [Unknown]
  - Chest pain [Unknown]
  - Pain in jaw [Unknown]
